FAERS Safety Report 7004068-8 (Version None)
Quarter: 2010Q3

REPORT INFORMATION
  Report Type: 
  Country: None (occurrence: None)
  Receive Date: 20100920
  Receipt Date: 20100125
  Transmission Date: 20110219
  Serious: No
  Sender: FDA-Public Use
  Company Number: US-WYE-H13142510

PATIENT
  Sex: Male

DRUGS (3)
  1. PROTONIX [Suspect]
     Indication: HYPERCHLORHYDRIA
     Route: 048
     Dates: start: 20090101
  2. METFORMIN [Concomitant]
  3. INSULIN [Concomitant]

REACTIONS (1)
  - DRUG SCREEN POSITIVE [None]
